FAERS Safety Report 22052612 (Version 2)
Quarter: 2023Q1

REPORT INFORMATION
  Report Type: Spontaneous
  Country: KZ (occurrence: KZ)
  Receive Date: 20230302
  Receipt Date: 20230320
  Transmission Date: 20230418
  Serious: Yes (Other)
  Sender: FDA-Public Use
  Company Number: KZ-ASTELLAS-2023US006848

PATIENT
  Age: 56 Year
  Sex: Female
  Weight: 60 kg

DRUGS (6)
  1. PROGRAF [Suspect]
     Active Substance: TACROLIMUS
     Indication: Immunosuppression
     Dosage: 0.5 MG, TWICE DAILY (0.5 MG + 0.5MG)
     Route: 048
     Dates: start: 20230201, end: 20230201
  2. PROGRAF [Suspect]
     Active Substance: TACROLIMUS
     Dosage: 1 MG, TWICE DAILY (1MG +1 MG)
     Route: 048
     Dates: start: 20230202, end: 20230202
  3. PROGRAF [Suspect]
     Active Substance: TACROLIMUS
     Dosage: 1 MG, TWICE DAILY (1MG +1 MG)
     Route: 048
     Dates: start: 20230203, end: 20230203
  4. PROGRAF [Suspect]
     Active Substance: TACROLIMUS
     Dosage: 2 MG, TWICE DAILY (2MG + 2MG)
     Route: 048
     Dates: start: 20230204, end: 20230204
  5. PROGRAF [Suspect]
     Active Substance: TACROLIMUS
     Dosage: 2 MG, ONCE DAILY IN THE MORNING, EVENING DOSE CANCELED
     Route: 048
     Dates: start: 20230205, end: 20230205
  6. CYCLOSPORINE [Concomitant]
     Active Substance: CYCLOSPORINE
     Indication: Immunosuppression
     Dosage: UNK UNK, UNKNOWN FREQ.
     Route: 065

REACTIONS (5)
  - Toxic encephalopathy [Recovered/Resolved]
  - Lethargy [Recovered/Resolved]
  - Muscular weakness [Recovered/Resolved]
  - Somnolence [Recovered/Resolved]
  - Generalised tonic-clonic seizure [Recovered/Resolved]

NARRATIVE: CASE EVENT DATE: 20230205
